FAERS Safety Report 7167774-0 (Version None)
Quarter: 2010Q4

REPORT INFORMATION
  Report Type: 
  Country: None (occurrence: None)
  Receive Date: 20101216
  Receipt Date: 20101017
  Transmission Date: 20110411
  Serious: No
  Sender: FDA-Public Use
  Company Number: A0887273A

PATIENT
  Sex: Male

DRUGS (1)
  1. NICORETTE [Suspect]

REACTIONS (3)
  - INTENTIONAL DRUG MISUSE [None]
  - NICOTINE DEPENDENCE [None]
  - PRODUCT QUALITY ISSUE [None]
